FAERS Safety Report 23730649 (Version 1)
Quarter: 2024Q2

REPORT INFORMATION
  Report Type: Report from Study
  Country: US (occurrence: US)
  Receive Date: 20240411
  Receipt Date: 20240411
  Transmission Date: 20240716
  Serious: Yes (Hospitalization, Other)
  Sender: FDA-Public Use
  Company Number: US-ABBVIE-5711310

PATIENT
  Age: 66 Year
  Sex: Female

DRUGS (1)
  1. CREON [Suspect]
     Active Substance: PANCRELIPASE AMYLASE\PANCRELIPASE LIPASE\PANCRELIPASE PROTEASE
     Indication: Pancreatic failure
     Dosage: FORM STRENGTH: 12000 UNIT?TWO EVERY MEAL; TWO EVERY SNACK
     Route: 048
     Dates: start: 202208

REACTIONS (5)
  - Abdominal pain [Recovered/Resolved]
  - Leiomyosarcoma [Not Recovered/Not Resolved]
  - Unevaluable event [Unknown]
  - Abdominal pain upper [Not Recovered/Not Resolved]
  - Colectomy [Recovered/Resolved]

NARRATIVE: CASE EVENT DATE: 20220801
